FAERS Safety Report 14155131 (Version 5)
Quarter: 2017Q4

REPORT INFORMATION
  Report Type: Spontaneous
  Country: JP (occurrence: JP)
  Receive Date: 20171103
  Receipt Date: 20171130
  Transmission Date: 20180321
  Serious: Yes (Death, Other)
  Sender: FDA-Public Use
  Company Number: JP-BRISTOL-MYERS SQUIBB COMPANY-BMS-2017-098414

PATIENT
  Age: 45 Year
  Sex: Female

DRUGS (3)
  1. GOSHAJINKIGAN [Concomitant]
     Active Substance: HERBALS
     Indication: PRODUCT USED FOR UNKNOWN INDICATION
     Dosage: 5 G, QD
     Route: 048
     Dates: start: 20171017, end: 20171026
  2. ABILIFY [Suspect]
     Active Substance: ARIPIPRAZOLE
     Indication: SCHIZOPHRENIA
     Dosage: 12 MG, QD
     Route: 065
     Dates: start: 20171017, end: 20171026
  3. LORAZEPAM. [Concomitant]
     Active Substance: LORAZEPAM
     Indication: PRODUCT USED FOR UNKNOWN INDICATION
     Dosage: 3 MG, QD
     Route: 048
     Dates: start: 20171026, end: 20171028

REACTIONS (6)
  - Pulmonary embolism [Unknown]
  - Blood creatine phosphokinase increased [Fatal]
  - Pyrexia [Unknown]
  - Myocardial infarction [Fatal]
  - Neuroleptic malignant syndrome [Fatal]
  - Cystitis [Recovered/Resolved]

NARRATIVE: CASE EVENT DATE: 20171023
